FAERS Safety Report 7382721-4 (Version None)
Quarter: 2011Q1

REPORT INFORMATION
  Report Type: 
  Country: None (occurrence: None)
  Receive Date: 20110330
  Receipt Date: 20110321
  Transmission Date: 20110831
  Serious: No
  Sender: FDA-Public Use
  Company Number: US-BIOGENIDEC-2010BI016814

PATIENT
  Age: 52 Year
  Sex: Female

DRUGS (1)
  1. TYSABRI [Suspect]
     Indication: MULTIPLE SCLEROSIS
     Route: 042
     Dates: start: 20080201, end: 20110228

REACTIONS (10)
  - BALANCE DISORDER [None]
  - DEPRESSION [None]
  - PRURITUS [None]
  - MEMORY IMPAIRMENT [None]
  - FATIGUE [None]
  - ANXIETY [None]
  - HYPERSENSITIVITY [None]
  - COGNITIVE DISORDER [None]
  - COUGH [None]
  - FEELING ABNORMAL [None]
